FAERS Safety Report 9651971 (Version 2)
Quarter: 2013Q4

REPORT INFORMATION
  Report Type: Spontaneous
  Country: US (occurrence: US)
  Receive Date: 20131029
  Receipt Date: 20131122
  Transmission Date: 20140711
  Serious: Yes (Other)
  Sender: FDA-Public Use
  Company Number: US-ALLERGAN-1316563US

PATIENT
  Age: 44 Year
  Sex: Female

DRUGS (3)
  1. LATISSE 0.03% [Suspect]
     Indication: GROWTH OF EYELASHES
     Dosage: UNK, ONCE A DAY
     Route: 061
     Dates: start: 20131002, end: 201310
  2. MASCARA [Concomitant]
  3. EYELINER [Concomitant]

REACTIONS (3)
  - Visual acuity reduced [Unknown]
  - Eyelid oedema [Recovered/Resolved]
  - Ocular hyperaemia [Recovered/Resolved]
